FAERS Safety Report 11137683 (Version 3)
Quarter: 2015Q3

REPORT INFORMATION
  Report Type: Spontaneous
  Country: US (occurrence: US)
  Receive Date: 20150526
  Receipt Date: 20150911
  Transmission Date: 20151125
  Serious: Yes (Death, Other)
  Sender: FDA-Public Use
  Company Number: US-MERCK-1505USA013580

PATIENT
  Sex: Female
  Weight: 87.98 kg

DRUGS (2)
  1. JANUVIA [Suspect]
     Active Substance: SITAGLIPTIN PHOSPHATE
     Indication: TYPE 2 DIABETES MELLITUS
     Dosage: 100 MG, UNK
     Route: 048
     Dates: start: 20090629, end: 20090730
  2. JANUVIA [Suspect]
     Active Substance: SITAGLIPTIN PHOSPHATE
     Dosage: 100 MG, UNK
     Route: 048
     Dates: start: 20091230, end: 201002

REACTIONS (14)
  - Metastases to lymph nodes [Unknown]
  - Metastases to lymph nodes [Unknown]
  - Bile duct obstruction [Unknown]
  - Death [Fatal]
  - Osteoporosis [Unknown]
  - Adenocarcinoma pancreas [Unknown]
  - Metastases to liver [Unknown]
  - Depression [Unknown]
  - Back pain [Unknown]
  - Bile duct stent insertion [Unknown]
  - Decreased appetite [Unknown]
  - Ascites [Unknown]
  - Stent placement [Unknown]
  - Gastrooesophageal reflux disease [Unknown]

NARRATIVE: CASE EVENT DATE: 200911
